FAERS Safety Report 6329887-2 (Version None)
Quarter: 2009Q3

REPORT INFORMATION
  Report Type: 
  Country: None (occurrence: None)
  Receive Date: 20090825
  Receipt Date: 20090817
  Transmission Date: 20100115
  Serious: Yes (Death)
  Sender: FDA-Public Use
  Company Number: TCI2009A03258

PATIENT
  Age: 67 Year
  Sex: Male

DRUGS (7)
  1. ACTOS [Suspect]
     Indication: TYPE 2 DIABETES MELLITUS
     Dosage: 30 MG (30 MG,1 D), PER ORAL
     Route: 048
     Dates: start: 20080110, end: 20081007
  2. ALPHA GLUCOSIDASE INHIBITORS [Concomitant]
  3. SULFONAMIDES, UREA DERIVATIVES [Concomitant]
  4. ANTIHYPERTENSIVES [Concomitant]
  5. CALCIUM CHANNEL BLOCKERS [Concomitant]
  6. ACE INHIBITOR NOS [Concomitant]
  7. ANTIGOUT PREPARATIONS [Concomitant]

REACTIONS (2)
  - JUGULAR VEIN DISTENSION [None]
  - SUDDEN DEATH [None]
